FAERS Safety Report 6369869-8 (Version None)
Quarter: 2009Q3

REPORT INFORMATION
  Report Type: 
  Country: None (occurrence: None)
  Receive Date: 20090923
  Receipt Date: 20071119
  Transmission Date: 20100115
  Serious: Yes (Other)
  Sender: FDA-Public Use
  Company Number: US-ASTRAZENECA-2006UW10716

PATIENT
  Age: 42 Year
  Sex: Male
  Weight: 117.9 kg

DRUGS (25)
  1. SEROQUEL [Suspect]
     Indication: BIPOLAR DISORDER
     Route: 048
     Dates: start: 19960101
  2. SEROQUEL [Suspect]
     Dosage: 25-100 MG
     Route: 048
     Dates: start: 20040420
  3. ABILIFY (ARIPIPARAZOLE) [Concomitant]
     Route: 048
     Dates: start: 20050506
  4. ABILIFY (ARIPIPARAZOLE) [Concomitant]
     Dates: start: 20050501, end: 20050920
  5. RISPERDAL [Concomitant]
     Route: 048
     Dates: start: 20020510
  6. HYDROCHLOROTHIAZIDE [Concomitant]
     Route: 048
     Dates: start: 20020510
  7. ALLOPURINOL [Concomitant]
     Route: 048
     Dates: start: 20020510
  8. PROVIGIL [Concomitant]
     Route: 048
     Dates: start: 20020510
  9. DEPAKOTE [Concomitant]
     Dosage: 250-500 MG, AT NIGHT
     Route: 048
     Dates: start: 20020510
  10. NEURONTIN [Concomitant]
     Route: 048
     Dates: start: 20020510
  11. CELEXA [Concomitant]
     Dosage: 40-60 MG
     Route: 048
     Dates: start: 20020510
  12. PREVACID [Concomitant]
     Dosage: 15-30 MG
     Route: 048
     Dates: start: 20020510
  13. PROCARDIA [Concomitant]
     Route: 048
     Dates: start: 20020510
  14. LAMICTAL [Concomitant]
     Dosage: 25 MG, TWO TABLETS DAILY
     Route: 048
     Dates: start: 20020510
  15. LIPITOR [Concomitant]
     Route: 048
     Dates: start: 20020510
  16. WELLBUTRIN [Concomitant]
     Dosage: 75 MG, ONE IN MORNING, HALF IN EVENING
     Route: 048
     Dates: start: 20030416
  17. VASOTEC [Concomitant]
     Route: 048
     Dates: start: 20030416
  18. TRILEPTAL [Concomitant]
     Dosage: 300 MG, ONE IN MORNING, HALF IN EVENING
     Route: 048
     Dates: start: 20030417
  19. SONATA [Concomitant]
     Route: 048
     Dates: start: 20040722
  20. AMARYL [Concomitant]
     Dosage: 1-2 MG
     Route: 048
     Dates: start: 20040810
  21. VIAGRA [Concomitant]
     Route: 048
     Dates: start: 20041018
  22. VIOXX [Concomitant]
     Route: 048
     Dates: start: 20041018
  23. AMBIEN [Concomitant]
     Route: 048
     Dates: start: 20050325
  24. PROPANOLOL HCL [Concomitant]
     Route: 048
     Dates: start: 20050325
  25. MOBIC [Concomitant]
     Route: 048
     Dates: start: 20050325

REACTIONS (7)
  - BLOOD CHOLESTEROL INCREASED [None]
  - BLOOD TRIGLYCERIDES INCREASED [None]
  - DIABETES MELLITUS [None]
  - DIABETES MELLITUS INADEQUATE CONTROL [None]
  - OBESITY [None]
  - TYPE 1 DIABETES MELLITUS [None]
  - TYPE 2 DIABETES MELLITUS [None]
